FAERS Safety Report 9774599 (Version 1)
Quarter: 2013Q4

REPORT INFORMATION
  Report Type: Spontaneous
  Country: IT (occurrence: IT)
  Receive Date: 20131220
  Receipt Date: 20131220
  Transmission Date: 20140711
  Serious: Yes (Hospitalization, Other)
  Sender: FDA-Public Use
  Company Number: IT-DRREDDYS-GER/ITL/13/0036411

PATIENT
  Age: 79 Year
  Sex: Female

DRUGS (1)
  1. CARVEDILOL [Suspect]
     Indication: PRODUCT USED FOR UNKNOWN INDICATION
     Route: 048
     Dates: start: 20100721, end: 20130721

REACTIONS (3)
  - Hypotension [Recovering/Resolving]
  - Dehydration [Unknown]
  - Asthenia [Unknown]
